FAERS Safety Report 10272538 (Version 1)
Quarter: 2014Q3

REPORT INFORMATION
  Report Type: Spontaneous
  Country: IT (occurrence: IT)
  Receive Date: 20140702
  Receipt Date: 20140702
  Transmission Date: 20150326
  Serious: Yes (Other)
  Sender: FDA-Public Use
  Company Number: IT-JNJFOC-20140616137

PATIENT
  Age: 57 Year
  Sex: Female
  Weight: 110 kg

DRUGS (1)
  1. HALDOL [Suspect]
     Active Substance: HALOPERIDOL
     Indication: PRODUCT USED FOR UNKNOWN INDICATION
     Route: 048
     Dates: start: 20140621, end: 20140621

REACTIONS (2)
  - Dysarthria [Unknown]
  - Self injurious behaviour [Unknown]

NARRATIVE: CASE EVENT DATE: 20140621
